FAERS Safety Report 13725966 (Version 1)
Quarter: 2017Q3

REPORT INFORMATION
  Report Type: Spontaneous
  Country: US (occurrence: US)
  Receive Date: 20170707
  Receipt Date: 20170707
  Transmission Date: 20171127
  Serious: Yes (Death, Hospitalization)
  Sender: FDA-Public Use
  Company Number: None

PATIENT
  Age: 71 Year
  Sex: Female
  Weight: 54 kg

DRUGS (1)
  1. CISPLATIN. [Suspect]
     Active Substance: CISPLATIN
     Dates: end: 20141210

REACTIONS (6)
  - Decreased appetite [None]
  - Febrile neutropenia [None]
  - Respiratory failure [None]
  - Nausea [None]
  - Weight decreased [None]
  - Pneumonia [None]

NARRATIVE: CASE EVENT DATE: 20141216
